FAERS Safety Report 5497896-1 (Version None)
Quarter: 2007Q4

REPORT INFORMATION
  Report Type: 
  Country: None (occurrence: None)
  Receive Date: 20071025
  Receipt Date: 20071010
  Transmission Date: 20080405
  Serious: Yes (Other)
  Sender: FDA-Public Use
  Company Number: JP-SHR-JP-2007-038324

PATIENT
  Age: 54 Year
  Sex: Male

DRUGS (9)
  1. FLUDARABINE PHOSPHATE [Suspect]
     Indication: IMMUNOSUPPRESSION
     Dosage: 30 MG/M2, 1X/DAY
  2. BUSULFAN [Concomitant]
     Indication: IMMUNOSUPPRESSION
     Dosage: 1 MG/KG, 4X/DAY
  3. CAMPATH [Suspect]
     Indication: IMMUNOSUPPRESSION
     Dosage: .2 MG/KG, 1X/DAY
  4. CYCLOSPORINE [Concomitant]
     Indication: PROPHYLAXIS AGAINST GRAFT VERSUS HOST DISEASE
  5. CYCLOSPORINE [Concomitant]
     Dosage: TO MAINTAIN 250-350 NG/ML
     Route: 048
  6. METHOTREXATE [Concomitant]
     Indication: PROPHYLAXIS AGAINST GRAFT VERSUS HOST DISEASE
  7. NEUPOGEN [Concomitant]
     Dosage: INFUSED ON DAY 0
  8. PROBENECID [Concomitant]
     Indication: DRUG TOXICITY PROPHYLAXIS
     Dosage: 2 G, 3 HOURS PRIOR TO CIDOFOVIR
  9. PROBENECID [Concomitant]
     Dosage: 1 G, 2 AND 8 HRS AFTER CIDOFOVIR

REACTIONS (5)
  - ANAEMIA HAEMOLYTIC AUTOIMMUNE [None]
  - APLASIA PURE RED CELL [None]
  - CYTOMEGALOVIRUS ANTIGEN POSITIVE [None]
  - CYTOMEGALOVIRUS CHORIORETINITIS [None]
  - RETICULOCYTE COUNT DECREASED [None]
